FAERS Safety Report 5235409-X (Version None)
Quarter: 2007Q1

REPORT INFORMATION
  Report Type: 
  Country: None (occurrence: None)
  Receive Date: 20070212
  Receipt Date: 20070130
  Transmission Date: 20070707
  Serious: Yes (Other)
  Sender: FDA-Public Use
  Company Number: US-JNJFOC-20061205109

PATIENT
  Sex: Female

DRUGS (9)
  1. REMICADE [Suspect]
     Route: 042
  2. REMICADE [Suspect]
     Indication: RHEUMATOID ARTHRITIS
     Route: 042
  3. PREDNISONE [Concomitant]
  4. ZANAFLEX [Concomitant]
  5. METHOTREXATE [Concomitant]
     Route: 048
  6. TALACEN [Concomitant]
     Indication: PAIN
  7. MOBIC [Concomitant]
     Dosage: 7.5
  8. REGLAN [Concomitant]
  9. NEXIUM [Concomitant]

REACTIONS (3)
  - BLOOD POTASSIUM DECREASED [None]
  - BUNION [None]
  - HYPERTENSION [None]
